FAERS Safety Report 8352252-3 (Version None)
Quarter: 2012Q2

REPORT INFORMATION
  Report Type: 
  Country: None (occurrence: None)
  Receive Date: 20120511
  Receipt Date: 20120508
  Transmission Date: 20120825
  Serious: Yes (Death)
  Sender: FDA-Public Use
  Company Number: US-CELGENEUS-163-21880-12031612

PATIENT
  Sex: Male

DRUGS (9)
  1. BUPRION [Concomitant]
     Route: 048
  2. ATENOLOL [Concomitant]
     Route: 048
  3. CRESTOR [Concomitant]
     Route: 048
  4. REVLIMID [Suspect]
     Dosage: 5 MILLIGRAM
     Route: 048
     Dates: start: 20100201
  5. COUMADIN [Concomitant]
     Route: 048
  6. REVLIMID [Suspect]
     Indication: MULTIPLE MYELOMA
     Dosage: 5 MILLIGRAM
     Route: 048
     Dates: start: 20090301
  7. LEXAPRO [Concomitant]
     Route: 048
  8. REVLIMID [Suspect]
     Dosage: 10MG-15MG
     Route: 048
     Dates: start: 20090701
  9. LYRICA [Concomitant]
     Route: 048

REACTIONS (2)
  - MULTIPLE MYELOMA [None]
  - DEPRESSION [None]
